FAERS Safety Report 21122431 (Version 2)
Quarter: 2022Q3

REPORT INFORMATION
  Report Type: Spontaneous
  Country: US (occurrence: None)
  Receive Date: 20220723
  Receipt Date: 20220727
  Transmission Date: 20221027
  Serious: Yes (Other)
  Sender: FDA-Public Use
  Company Number: 2022A257682

PATIENT
  Age: 937 Month
  Sex: Female
  Weight: 51.7 kg

DRUGS (2)
  1. SYMBICORT [Suspect]
     Active Substance: BUDESONIDE\FORMOTEROL FUMARATE DIHYDRATE
     Indication: Pulmonary congestion
     Dosage: STRENGTH, DOSE AND FREQUENCY UNKNOWN UNKNOWN
     Route: 055
     Dates: start: 2018
  2. PULMICORT FLEXHALER [Suspect]
     Active Substance: BUDESONIDE
     Indication: Pulmonary congestion
     Route: 055
     Dates: start: 20220715

REACTIONS (5)
  - Bronchiectasis [Unknown]
  - H1N1 influenza [Not Recovered/Not Resolved]
  - Wrong technique in device usage process [Unknown]
  - Intentional device misuse [Unknown]
  - Device malfunction [Unknown]

NARRATIVE: CASE EVENT DATE: 20220701
